FAERS Safety Report 7262755-0 (Version None)
Quarter: 2011Q1

REPORT INFORMATION
  Report Type: 
  Country: None (occurrence: None)
  Receive Date: 20110130
  Receipt Date: 20100909
  Transmission Date: 20110831
  Serious: No
  Sender: FDA-Public Use
  Company Number: US-ABBOTT-10P-163-0666509-00

PATIENT
  Sex: Female
  Weight: 92.162 kg

DRUGS (19)
  1. PROPON-APAP [Concomitant]
     Indication: PAIN
  2. HYDROCHLOROTHIAZIDE [Concomitant]
     Indication: HYPERTENSION
  3. CITALOPRAM [Concomitant]
     Indication: DEPRESSION
  4. FLONASE [Concomitant]
     Indication: HYPERSENSITIVITY
  5. DONNATOL [Concomitant]
     Indication: CROHN'S DISEASE
  6. AMLODIPINE [Concomitant]
     Indication: HYPERTENSION
  7. LORAZEPAM [Concomitant]
     Indication: ANXIETY
  8. SYNTHROID [Concomitant]
     Indication: HYPOTHYROIDISM
  9. LIALDA [Concomitant]
     Indication: CROHN'S DISEASE
  10. ZYRTEC [Concomitant]
     Indication: HYPERSENSITIVITY
  11. ONDANSETRON [Concomitant]
     Indication: VOMITING
  12. METHOTREXATE [Concomitant]
     Indication: RHEUMATOID ARTHRITIS
  13. FOLIC ACID [Concomitant]
     Indication: CROHN'S DISEASE
  14. HUMIRA [Suspect]
     Indication: RHEUMATOID ARTHRITIS
     Dates: start: 20090101
  15. SUCRALSATE [Concomitant]
     Indication: CROHN'S DISEASE
  16. FLOVENT [Concomitant]
     Indication: ASTHMA
  17. PROVENTAL [Concomitant]
     Indication: ASTHMA
  18. VITAMIN D [Concomitant]
     Indication: VITAMIN SUPPLEMENTATION
  19. CALCIUM [Concomitant]
     Indication: OSTEOPOROSIS

REACTIONS (4)
  - DEVICE MALFUNCTION [None]
  - HYPOAESTHESIA [None]
  - INCORRECT ROUTE OF DRUG ADMINISTRATION [None]
  - INJECTION SITE HAEMORRHAGE [None]
